FAERS Safety Report 17143431 (Version 2)
Quarter: 2020Q3

REPORT INFORMATION
  Report Type: Spontaneous
  Country: US (occurrence: US)
  Receive Date: 20191212
  Receipt Date: 20200827
  Transmission Date: 20201102
  Serious: Yes (Other)
  Sender: FDA-Public Use
  Company Number: US-GILEAD-2019-0441988

PATIENT
  Age: 28 Year
  Sex: Female
  Weight: 83.9 kg

DRUGS (33)
  1. ONDANSETRON [Concomitant]
     Active Substance: ONDANSETRON
  2. FENTANYL. [Concomitant]
     Active Substance: FENTANYL
  3. LIDOCAINE. [Concomitant]
     Active Substance: LIDOCAINE
  4. CLINDAMYCIN. [Concomitant]
     Active Substance: CLINDAMYCIN
  5. DEXAMETHASONE. [Concomitant]
     Active Substance: DEXAMETHASONE
  6. PROPOFOL. [Concomitant]
     Active Substance: PROPOFOL
  7. ERYTHROMYCIN. [Concomitant]
     Active Substance: ERYTHROMYCIN
  8. FLUCONAZOLE. [Concomitant]
     Active Substance: FLUCONAZOLE
  9. PREDNISONE. [Concomitant]
     Active Substance: PREDNISONE
  10. AMPICILLIN AND SULBACTAM [Concomitant]
     Active Substance: AMPICILLIN SODIUM\SULBACTAM SODIUM
  11. ACETAMINOPHEN. [Concomitant]
     Active Substance: ACETAMINOPHEN
  12. METHOCARBAMOL. [Concomitant]
     Active Substance: METHOCARBAMOL
  13. SULFAMETHOXAZOLE [Concomitant]
     Active Substance: SULFAMETHOXAZOLE
  14. ATRIPLA [Suspect]
     Active Substance: EFAVIRENZ\EMTRICITABINE\TENOFOVIR DISOPROXIL FUMARATE
     Dosage: UNK
     Route: 048
     Dates: start: 20170207, end: 20171130
  15. ATRIPLA [Suspect]
     Active Substance: EFAVIRENZ\EMTRICITABINE\TENOFOVIR DISOPROXIL FUMARATE
     Dosage: UNK
     Route: 048
     Dates: start: 20171031, end: 20171201
  16. BIKTARVY [Concomitant]
     Active Substance: BICTEGRAVIR SODIUM\EMTRICITABINE\TENOFOVIR ALAFENAMIDE FUMARATE
  17. EPINEPHRINE. [Concomitant]
     Active Substance: EPINEPHRINE
  18. DICLOFENAC SODIUM. [Concomitant]
     Active Substance: DICLOFENAC SODIUM
  19. PERCOCET [Concomitant]
     Active Substance: ACETAMINOPHEN\OXYCODONE HYDROCHLORIDE
  20. ROCURONIUM [Concomitant]
     Active Substance: ROCURONIUM BROMIDE
  21. CEPHALEXIN AMEL [Concomitant]
     Active Substance: CEPHALEXIN
  22. FENOFIBRATE. [Concomitant]
     Active Substance: FENOFIBRATE
  23. LACTATED RINGERS SOLUTION [Concomitant]
     Active Substance: CALCIUM CHLORIDE\POTASSIUM CHLORIDE\SODIUM CHLORIDE\SODIUM LACTATE
  24. FERROUS SULFATE. [Concomitant]
     Active Substance: FERROUS SULFATE
  25. NAPROXEN. [Concomitant]
     Active Substance: NAPROXEN
  26. ATRIPLA [Suspect]
     Active Substance: EFAVIRENZ\EMTRICITABINE\TENOFOVIR DISOPROXIL FUMARATE
     Indication: HIV INFECTION
     Dosage: UNK
     Route: 048
     Dates: start: 20110526, end: 20160328
  27. MORPHINE [Concomitant]
     Active Substance: MORPHINE
  28. PROMETHAZINE [Concomitant]
     Active Substance: PROMETHAZINE HYDROCHLORIDE
  29. TRAMADOL. [Concomitant]
     Active Substance: TRAMADOL
  30. GENVOYA [Concomitant]
     Active Substance: COBICISTAT\ELVITEGRAVIR\EMTRICITABINE\TENOFOVIR ALAFENAMIDE FUMARATE
  31. HYDROCODONE [Concomitant]
     Active Substance: HYDROCODONE
  32. AMOXICILLIN. [Concomitant]
     Active Substance: AMOXICILLIN
  33. PHENERGAN [Concomitant]
     Active Substance: PROMETHAZINE HYDROCHLORIDE

REACTIONS (13)
  - Upper limb fracture [Unknown]
  - Jaw fracture [Unknown]
  - Economic problem [Not Recovered/Not Resolved]
  - Ankle fracture [Unknown]
  - Quality of life decreased [Not Recovered/Not Resolved]
  - Osteoporosis [Unknown]
  - Facial bones fracture [Not Recovered/Not Resolved]
  - Anxiety [Not Recovered/Not Resolved]
  - Bone density decreased [Unknown]
  - Emotional distress [Not Recovered/Not Resolved]
  - Decreased activity [Not Recovered/Not Resolved]
  - Pain [Not Recovered/Not Resolved]
  - Anhedonia [Not Recovered/Not Resolved]

NARRATIVE: CASE EVENT DATE: 20180701
